FAERS Safety Report 19363797 (Version 1)
Quarter: 2021Q2

REPORT INFORMATION
  Report Type: Spontaneous
  Country: CA (occurrence: CA)
  Receive Date: 20210602
  Receipt Date: 20210602
  Transmission Date: 20210717
  Serious: Yes (Other)
  Sender: FDA-Public Use
  Company Number: CA-PFIZER INC-2021600479

PATIENT
  Age: 45 Year
  Sex: Female

DRUGS (5)
  1. ACTEMRA [Suspect]
     Active Substance: TOCILIZUMAB
     Dosage: UNK
     Route: 048
  2. HUMIRA [Suspect]
     Active Substance: ADALIMUMAB
     Dosage: UNK
     Route: 058
  3. PLAQUENIL [Suspect]
     Active Substance: HYDROXYCHLOROQUINE SULFATE
     Dosage: UNK
     Route: 048
  4. ENBREL [Suspect]
     Active Substance: ETANERCEPT
     Dosage: UNK
     Route: 048
  5. METHOTREXATE SODIUM. [Suspect]
     Active Substance: METHOTREXATE SODIUM
     Indication: RHEUMATOID ARTHRITIS
     Dosage: UNK
     Route: 048

REACTIONS (12)
  - Drug ineffective [Recovered/Resolved]
  - Headache [Recovered/Resolved]
  - Hereditary motor and sensory neuropathy [Recovered/Resolved]
  - Vomiting [Recovered/Resolved]
  - Off label use [Unknown]
  - Drug intolerance [Recovered/Resolved]
  - Incorrect route of product administration [Unknown]
  - Sleep apnoea syndrome [Recovered/Resolved]
  - Blindness [Recovered/Resolved]
  - Skin reaction [Recovered/Resolved]
  - Blood cholesterol increased [Recovered/Resolved]
  - Photosensitivity reaction [Recovered/Resolved]
